FAERS Safety Report 23464258 (Version 1)
Quarter: 2024Q1

REPORT INFORMATION
  Report Type: Spontaneous
  Country: US (occurrence: US)
  Receive Date: 20240201
  Receipt Date: 20240201
  Transmission Date: 20240409
  Serious: No
  Sender: FDA-Public Use
  Company Number: US-PERRIGO-23US006812

PATIENT
  Age: 81 Year
  Sex: Male

DRUGS (3)
  1. OMEPRAZOLE [Suspect]
     Active Substance: OMEPRAZOLE
     Indication: Ulcer haemorrhage
     Dosage: 20 MG, QD
     Route: 048
     Dates: start: 20230513, end: 20230526
  2. OMEPRAZOLE [Suspect]
     Active Substance: OMEPRAZOLE
     Dosage: 40 MG, QD
     Route: 048
     Dates: start: 20230527, end: 20230609
  3. CALQUENCE [Concomitant]
     Active Substance: ACALABRUTINIB
     Indication: Leukaemia
     Dosage: 100 MG, BID 2 SEPARATED DOSES
     Route: 065
     Dates: start: 202304

REACTIONS (4)
  - Productive cough [Recovering/Resolving]
  - Chills [Recovered/Resolved]
  - Off label use [Unknown]
  - Incorrect product administration duration [Unknown]

NARRATIVE: CASE EVENT DATE: 20230513
